FAERS Safety Report 9832336 (Version 1)
Quarter: 2014Q1

REPORT INFORMATION
  Report Type: Spontaneous
  Country: US (occurrence: US)
  Receive Date: 20140121
  Receipt Date: 20140121
  Transmission Date: 20141002
  Serious: No
  Sender: FDA-Public Use
  Company Number: US-TARO-2013P1002571

PATIENT
  Age: 45 Year
  Sex: Female
  Weight: 86.64 kg

DRUGS (7)
  1. CLOTRIMAZOLE [Suspect]
     Route: 067
     Dates: start: 20130213, end: 20130217
  2. CLOTRIMAZOLE [Suspect]
     Route: 067
     Dates: start: 20130213, end: 20130217
  3. CLOTRIMAZOLE [Suspect]
     Route: 067
     Dates: start: 20130213, end: 20130217
  4. OMEPRAZOLE [Concomitant]
  5. LYRICA [Concomitant]
  6. UNSPECIFIED PROBIOTICS [Concomitant]
  7. GAS-X [Concomitant]

REACTIONS (3)
  - Haemorrhage [Recovered/Resolved]
  - Vaginal discharge [Recovered/Resolved]
  - Incorrect drug administration duration [Recovered/Resolved]
